FAERS Safety Report 13620389 (Version 1)
Quarter: 2017Q2

REPORT INFORMATION
  Report Type: Spontaneous
  Country: US (occurrence: US)
  Receive Date: 20170607
  Receipt Date: 20170607
  Transmission Date: 20170830
  Serious: Yes (Hospitalization)
  Sender: FDA-Public Use
  Company Number: None

PATIENT
  Sex: Female
  Weight: 70.7 kg

DRUGS (16)
  1. EPCLUSA [Suspect]
     Active Substance: SOFOSBUVIR\VELPATASVIR
     Indication: HEPATITIS C
     Route: 048
     Dates: start: 20160831, end: 20161123
  2. PREGABALIN. [Concomitant]
     Active Substance: PREGABALIN
  3. VORTIOXETINE [Concomitant]
     Active Substance: VORTIOXETINE
  4. FUROSEMIDE. [Concomitant]
     Active Substance: FUROSEMIDE
  5. LISINOPRIL. [Concomitant]
     Active Substance: LISINOPRIL
  6. PREDNISONE. [Concomitant]
     Active Substance: PREDNISONE
  7. HYDROCODONE-ACETAMINOPHEN [Concomitant]
     Active Substance: ACETAMINOPHEN\HYDROCODONE
  8. ALPRAZOLAM. [Concomitant]
     Active Substance: ALPRAZOLAM
  9. DOXEPIN [Concomitant]
     Active Substance: DOXEPIN
  10. CALCIUM CARBONATE. [Concomitant]
     Active Substance: CALCIUM CARBONATE
  11. CHOLECALCIFEROL [Concomitant]
     Active Substance: CHOLECALCIFEROL
  12. ENTECAVIR. [Concomitant]
     Active Substance: ENTECAVIR
  13. FAMOTIDINE. [Concomitant]
     Active Substance: FAMOTIDINE
  14. AMBIEN [Concomitant]
     Active Substance: ZOLPIDEM TARTRATE
  15. POTASSIUM CHLORIDE. [Concomitant]
     Active Substance: POTASSIUM CHLORIDE
  16. DAPSONE. [Concomitant]
     Active Substance: DAPSONE

REACTIONS (7)
  - Acute kidney injury [None]
  - Hypertensive crisis [None]
  - Cardiorenal syndrome [None]
  - Cryoglobulinaemia [None]
  - Glomerulonephritis [None]
  - Blood fibrinogen decreased [None]
  - Diastolic dysfunction [None]

NARRATIVE: CASE EVENT DATE: 20160824
